FAERS Safety Report 22400187 (Version 1)
Quarter: 2023Q2

REPORT INFORMATION
  Report Type: Spontaneous
  Country: CA (occurrence: CA)
  Receive Date: 20230602
  Receipt Date: 20230602
  Transmission Date: 20230721
  Serious: Yes (Other)
  Sender: FDA-Public Use
  Company Number: CA-SUN PHARMACEUTICAL INDUSTRIES LTD-2023R1-392701

PATIENT
  Age: 30 Year
  Sex: Female

DRUGS (1)
  1. CINACALCET [Suspect]
     Active Substance: CINACALCET
     Indication: Hypercalcaemia
     Dosage: 30 MILLIGRAM, BID
     Route: 065

REACTIONS (5)
  - Exposure during pregnancy [Unknown]
  - Premature delivery [Unknown]
  - Hungry bone syndrome [Unknown]
  - Femur fracture [Unknown]
  - Fall [Unknown]
